FAERS Safety Report 5852452-8 (Version None)
Quarter: 2008Q3

REPORT INFORMATION
  Report Type: 
  Country: None (occurrence: None)
  Receive Date: 20080820
  Receipt Date: 20080820
  Transmission Date: 20090109
  Serious: Yes (Other)
  Sender: FDA-Public Use
  Company Number: None

PATIENT
  Sex: Male

DRUGS (1)
  1. PYRIDOSTIGMINE 60MG IMPAX (GLOBAL) [Suspect]
     Dosage: 1 TABLET FOUR TIMES DAILY
     Dates: start: 20071201, end: 20080801

REACTIONS (2)
  - INCORRECT DOSE ADMINISTERED [None]
  - PHARMACEUTICAL PRODUCT COMPLAINT [None]
